FAERS Safety Report 5383948-3 (Version None)
Quarter: 2007Q3

REPORT INFORMATION
  Report Type: 
  Country: None (occurrence: None)
  Receive Date: 20070711
  Receipt Date: 20070629
  Transmission Date: 20080115
  Serious: Yes (Other)
  Sender: FDA-Public Use
  Company Number: GB-ROCHE-505228

PATIENT
  Age: 46 Year
  Sex: Male
  Weight: 139.7 kg

DRUGS (1)
  1. XENICAL [Suspect]
     Indication: OBESITY
     Route: 048
     Dates: start: 20061228

REACTIONS (2)
  - INCREASED TENDENCY TO BRUISE [None]
  - THROMBOSIS [None]
